FAERS Safety Report 21658115 (Version 1)
Quarter: 2022Q4

REPORT INFORMATION
  Report Type: Spontaneous
  Country: NL (occurrence: NL)
  Receive Date: 20221129
  Receipt Date: 20221129
  Transmission Date: 20230113
  Serious: Yes (Other)
  Sender: FDA-Public Use
  Company Number: None

PATIENT
  Sex: Female
  Weight: 73 kg

DRUGS (2)
  1. BUPRENORPHINE [Suspect]
     Active Substance: BUPRENORPHINE
     Indication: Pain
     Dosage: 5UG STRONG PATCH THERE IS A 20UG PATCH BY MISTAKE
     Route: 065
     Dates: start: 20200617
  2. CITALOPRAM [Concomitant]
     Active Substance: CITALOPRAM HYDROBROMIDE
     Dosage: 10 MILLIGRAM, COATED TABLET
     Route: 065

REACTIONS (3)
  - Somnolence [Recovered/Resolved]
  - Wrong dose [Recovered/Resolved]
  - Product appearance confusion [Unknown]
